FAERS Safety Report 4778911-7 (Version None)
Quarter: 2005Q3

REPORT INFORMATION
  Report Type: 
  Country: None (occurrence: None)
  Receive Date: 20050922
  Receipt Date: 20050909
  Transmission Date: 20060218
  Serious: Yes (Death)
  Sender: FDA-Public Use
  Company Number: DSA_70671_2005

PATIENT
  Age: 51 Year
  Sex: Female
  Weight: 113.3993 kg

DRUGS (4)
  1. ORAMORPH SR [Suspect]
  2. PAROXETINE HCL [Suspect]
  3. ALPRAZOLAM [Suspect]
  4. QUETIAPINE FUMARATE [Suspect]

REACTIONS (3)
  - DRUG TOXICITY [None]
  - FEELING ABNORMAL [None]
  - MULTIPLE DRUG OVERDOSE ACCIDENTAL [None]
